FAERS Safety Report 5277474-X (Version None)
Quarter: 2007Q1

REPORT INFORMATION
  Report Type: 
  Country: None (occurrence: None)
  Receive Date: 20061213
  Receipt Date: 20051219
  Transmission Date: 20070707
  Serious: No
  Sender: FDA-Public Use
  Company Number: 2005UW17022

PATIENT
  Age: 34 Year
  Sex: Female

DRUGS (3)
  1. SEROQUEL [Suspect]
     Indication: INSOMNIA
     Dosage: 50 MG ONCE PO
     Route: 048
     Dates: start: 20051109, end: 20051109
  2. ZYPREXA [Concomitant]
  3. GEODON [Concomitant]

REACTIONS (1)
  - AKATHISIA [None]
